FAERS Safety Report 11401977 (Version 1)
Quarter: 2015Q3

REPORT INFORMATION
  Report Type: Report from Study
  Country: US (occurrence: US)
  Receive Date: 20150821
  Receipt Date: 20150821
  Transmission Date: 20151125
  Serious: Yes (Hospitalization)
  Sender: FDA-Public Use
  Company Number: US-AUROBINDO-AUR-APL-2015-07341

PATIENT
  Sex: Female

DRUGS (1)
  1. ONDANSETRON 24MG [Suspect]
     Active Substance: ONDANSETRON
     Indication: ANTIEMETIC SUPPORTIVE CARE
     Dosage: 24 MG, EVERY 6 HOURS
     Route: 065

REACTIONS (2)
  - Intestinal obstruction [Unknown]
  - Exposure during pregnancy [Unknown]
